FAERS Safety Report 12055472 (Version 3)
Quarter: 2016Q1

REPORT INFORMATION
  Report Type: Spontaneous
  Country: US (occurrence: US)
  Receive Date: 20160209
  Receipt Date: 20160322
  Transmission Date: 20160526
  Serious: Yes (Life-Threatening, Hospitalization, Other)
  Sender: FDA-Public Use
  Company Number: US-VALIDUS PHARMACEUTICALS LLC-US-2016VAL000139

PATIENT

DRUGS (33)
  1. METOPROLOL TARTRATE. [Suspect]
     Active Substance: METOPROLOL TARTRATE
     Dosage: 50 MG, TID
     Route: 048
  2. CETIRIZINE [Suspect]
     Active Substance: CETIRIZINE HYDROCHLORIDE
     Indication: PRODUCT USED FOR UNKNOWN INDICATION
     Dosage: 10 MG, QD
     Route: 048
  3. ACETAMINOPHEN W/HYDROCODONE [Suspect]
     Active Substance: ACETAMINOPHEN\HYDROCODONE
     Indication: PAIN
     Dosage: 1 DF, Q4H PRN
     Route: 048
  4. BACLOFEN. [Suspect]
     Active Substance: BACLOFEN
     Dosage: AMPOULE, 764.7 ?G, QD (INCREASED 10 PERCENT)
     Route: 037
     Dates: start: 20151006
  5. BACLOFEN. [Suspect]
     Active Substance: BACLOFEN
     Dosage: AMPOULE, 660.9 ?G, QD (DECREASED 20 PERCENT)
     Route: 037
     Dates: start: 20151228
  6. BACLOFEN. [Suspect]
     Active Substance: BACLOFEN
     Indication: PAIN IN EXTREMITY
     Dosage: 10 MG, Q4H
     Route: 048
  7. PARACETAMOL [Suspect]
     Active Substance: ACETAMINOPHEN
     Indication: PAIN
     Dosage: 2 DF, Q4H PRN
     Route: 048
  8. PRIALT [Suspect]
     Active Substance: ZICONOTIDE ACETATE
     Dosage: 4.397 ?G, QD (INCREASED 10 PERCENT)
     Route: 037
     Dates: start: 20151006
  9. PREMARIN [Suspect]
     Active Substance: ESTROGENS, CONJUGATED
     Indication: PRODUCT USED FOR UNKNOWN INDICATION
     Dosage: 1 DF, QD
     Route: 048
  10. RIVAROXABAN [Suspect]
     Active Substance: RIVAROXABAN
     Indication: PRODUCT USED FOR UNKNOWN INDICATION
     Dosage: 10 MG, QD
     Route: 048
  11. METOPROLOL TARTRATE. [Suspect]
     Active Substance: METOPROLOL TARTRATE
     Indication: PRODUCT USED FOR UNKNOWN INDICATION
     Dosage: 50 MG, BID
     Route: 048
  12. HYDROCHLOROTHIAZIDE. [Suspect]
     Active Substance: HYDROCHLOROTHIAZIDE
     Indication: PRODUCT USED FOR UNKNOWN INDICATION
     Dosage: 25 MG, QD
     Route: 048
  13. APO-FLUTICASONE [Suspect]
     Active Substance: FLUTICASONE PROPIONATE
     Indication: PRODUCT USED FOR UNKNOWN INDICATION
     Dosage: 50 ?G, QD, INHALATION (IN BOTH NOSTRIL)
  14. BACLOFEN. [Suspect]
     Active Substance: BACLOFEN
     Indication: MUSCLE SPASTICITY
     Dosage: AMPOULE, 868 ?G, QD
     Route: 037
  15. PRIALT [Suspect]
     Active Substance: ZICONOTIDE ACETATE
     Dosage: 3.8 ?G, QD (DECREASED 20 PERCENT)
     Route: 037
     Dates: start: 20151228
  16. KLOR-CON M20 [Suspect]
     Active Substance: POTASSIUM CHLORIDE
     Indication: PRODUCT USED FOR UNKNOWN INDICATION
     Dosage: 20 MEQ, QD
     Route: 048
  17. VESICARE [Suspect]
     Active Substance: SOLIFENACIN SUCCINATE
     Indication: PRODUCT USED FOR UNKNOWN INDICATION
     Dosage: 5 MG, QD
     Route: 048
  18. BACLOFEN. [Suspect]
     Active Substance: BACLOFEN
     Dosage: AMPOULE, 696.9 ?G, QD
     Route: 037
  19. BACLOFEN. [Suspect]
     Active Substance: BACLOFEN
     Indication: MUSCLE SPASMS
  20. PARACETAMOL [Suspect]
     Active Substance: ACETAMINOPHEN
     Indication: HEADACHE
  21. TESTOSTERONE CYPIONATE. [Suspect]
     Active Substance: TESTOSTERONE CYPIONATE
     Indication: PRODUCT USED FOR UNKNOWN INDICATION
     Dosage: 200 MG,Q4WK
     Route: 030
  22. AMBIEN [Suspect]
     Active Substance: ZOLPIDEM TARTRATE
     Indication: SLEEP DISORDER
     Dosage: 5 MG, QHS PRN
     Route: 048
  23. LASIX [Suspect]
     Active Substance: FUROSEMIDE
     Indication: PRODUCT USED FOR UNKNOWN INDICATION
     Dosage: 20 MG, QD
     Route: 048
  24. MELOXICAM. [Suspect]
     Active Substance: MELOXICAM
     Indication: PRODUCT USED FOR UNKNOWN INDICATION
     Dosage: 15 MG, QD
  25. FLONASE [Suspect]
     Active Substance: FLUTICASONE PROPIONATE
     Indication: PRODUCT USED FOR UNKNOWN INDICATION
     Dosage: 50 ?G, BID, INHALATION (IN BOTH NOSTRIL)
  26. PRILOSEC [Suspect]
     Active Substance: OMEPRAZOLE MAGNESIUM
     Indication: PRODUCT USED FOR UNKNOWN INDICATION
     Dosage: 20 MG, QD
     Route: 048
  27. POTASSIUM CHLORIDE. [Suspect]
     Active Substance: POTASSIUM CHLORIDE
     Indication: PRODUCT USED FOR UNKNOWN INDICATION
     Dosage: 20 MEQ, QD
     Route: 048
  28. PRIALT [Suspect]
     Active Substance: ZICONOTIDE ACETATE
     Indication: MUSCLE SPASTICITY
     Dosage: 4.007 ?G, QD
     Route: 037
  29. PRIALT [Suspect]
     Active Substance: ZICONOTIDE ACETATE
     Dosage: 4.8 ?G, QD (INCREASED 10 PERCENT)
     Route: 037
     Dates: start: 20151201
  30. LYRICA [Suspect]
     Active Substance: PREGABALIN
     Indication: PRODUCT USED FOR UNKNOWN INDICATION
     Dosage: 50 MG, BID
     Route: 048
  31. LYRICA [Suspect]
     Active Substance: PREGABALIN
     Dosage: 50 MG, QD
     Route: 048
  32. MULTIVITAMIN                       /00097801/ [Suspect]
     Active Substance: VITAMINS
     Indication: PRODUCT USED FOR UNKNOWN INDICATION
     Dosage: 1 DF, QD
     Route: 048
  33. PREDNISOLONE SODIUM PHOSPHATE. [Suspect]
     Active Substance: PREDNISOLONE SODIUM PHOSPHATE
     Indication: PRODUCT USED FOR UNKNOWN INDICATION
     Dosage: UNK

REACTIONS (17)
  - Delusion [Recovered/Resolved]
  - Discomfort [Recovered/Resolved]
  - Haemodilution [Recovered/Resolved]
  - Confusional state [Recovered/Resolved]
  - Hallucinations, mixed [Recovered/Resolved]
  - Hypokalaemia [Recovered/Resolved]
  - Muscle spasticity [Recovered/Resolved with Sequelae]
  - Overdose [Recovered/Resolved]
  - Pain [Recovered/Resolved]
  - Anaemia [Recovered/Resolved]
  - Sudden onset of sleep [Recovered/Resolved]
  - Muscle spasms [Recovered/Resolved]
  - Mental status changes [Recovered/Resolved]
  - Hypomagnesaemia [Recovered/Resolved]
  - Hallucination [Recovered/Resolved]
  - Blood creatine phosphokinase increased [Recovered/Resolved]
  - Rhabdomyolysis [Recovered/Resolved]

NARRATIVE: CASE EVENT DATE: 201512
